FAERS Safety Report 4493931-8 (Version None)
Quarter: 2004Q4

REPORT INFORMATION
  Report Type: 
  Country: None (occurrence: None)
  Receive Date: 20041102
  Receipt Date: 20041014
  Transmission Date: 20050328
  Serious: Yes (Other)
  Sender: FDA-Public Use
  Company Number: USA041080738

PATIENT
  Age: 60 Year
  Sex: Female
  Weight: 68 kg

DRUGS (4)
  1. STRATTERA [Suspect]
     Indication: THINKING ABNORMAL
     Dosage: 40 MG/1 DAY
     Route: 048
     Dates: start: 20040801
  2. ZOCOR   (SIMVASTATIN RATIOPHARM) [Concomitant]
  3. FOSAMAX [Concomitant]
  4. PREMARIN [Concomitant]

REACTIONS (4)
  - BLOOD PRESSURE INCREASED [None]
  - BUNDLE BRANCH BLOCK RIGHT [None]
  - FEELING ABNORMAL [None]
  - TREATMENT NONCOMPLIANCE [None]
